FAERS Safety Report 26175197 (Version 1)
Quarter: 2025Q4

REPORT INFORMATION
  Report Type: Other
  Country: EU (occurrence: EU)
  Receive Date: 20251218
  Receipt Date: 20251218
  Transmission Date: 20260118
  Serious: Yes (Death, Life-Threatening, Hospitalization, Disabling, Other)
  Sender: BIOCON
  Company Number: None

PATIENT

DRUGS (17)
  1. BEVACIZUMAB [Suspect]
     Active Substance: BEVACIZUMAB
     Indication: Cervix carcinoma
     Dosage: UNK, 6 CYCLES
     Route: 065
     Dates: start: 20250712, end: 20251030
  2. PACLITAXEL [Suspect]
     Active Substance: PACLITAXEL
     Indication: Cervix carcinoma
     Dosage: UNK UNK, Q2W 3 CYCLES
     Route: 065
     Dates: start: 20250712
  3. CISPLATIN [Suspect]
     Active Substance: CISPLATIN
     Indication: Cervix carcinoma
     Dosage: UNK UNK, Q3W (3 CYCLES)
     Route: 065
     Dates: start: 20250712
  4. KEYTRUDA [Suspect]
     Active Substance: PEMBROLIZUMAB
     Indication: Cervix carcinoma
     Dosage: 200 MILLIGRAM, Q3W 6 CYCLES
     Route: 042
     Dates: start: 20250712, end: 20251030
  5. ALENDROGEN [Concomitant]
     Indication: Product used for unknown indication
     Dosage: 70 MILLIGRAM, QWEEK (1X WEEKLY ON SUNDAYS )
     Route: 048
  6. ROSUVASTATIN CALCIUM [Concomitant]
     Active Substance: ROSUVASTATIN CALCIUM
     Indication: Product used for unknown indication
     Dosage: 20 MILLIGRAM, QD (0-0-1)
     Route: 048
  7. FORTILIP [Concomitant]
     Indication: Product used for unknown indication
     Dosage: 267 MILLIGRAM, QD
     Route: 048
  8. ASCORBIC ACID\RUTIN [Concomitant]
     Active Substance: ASCORBIC ACID\RUTIN
     Indication: Product used for unknown indication
     Dosage: UNK UNK, Q8H (100MG/20MG 2-2-2)
     Route: 048
  9. CALCIUM CARBONATE\CHOLECALCIFEROL [Concomitant]
     Active Substance: CALCIUM CARBONATE\CHOLECALCIFEROL
     Indication: Osteoporosis
     Dosage: UNK UNK, QD (500MG/1000IU 0-0-1)
     Route: 048
  10. FUROSEMIDE [Concomitant]
     Active Substance: FUROSEMIDE
     Indication: Product used for unknown indication
     Dosage: 40 MILLIGRAM, QD (1-0-0)
     Route: 048
  11. CHOLECALCIFEROL [Concomitant]
     Active Substance: CHOLECALCIFEROL
     Indication: Product used for unknown indication
     Dosage: 25 DROPS, QWEEK (1X WEEKLY ON SATURDAYS)
     Route: 048
  12. ENTECAVIR [Concomitant]
     Active Substance: ENTECAVIR
     Indication: Chronic hepatitis B
     Dosage: UNK
     Route: 065
     Dates: start: 20241120
  13. MULADO [Concomitant]
     Indication: Type 2 diabetes mellitus
     Dosage: 500 MILLIGRAM, QD (1-0-0 )
     Route: 048
  14. SPIRONOLACTONE [Concomitant]
     Active Substance: SPIRONOLACTONE
     Indication: Product used for unknown indication
     Dosage: 12.5 MILLIGRAM, QD (0-1/2-0)
     Route: 048
  15. DEXKETOPROFEN\TRAMADOL [Concomitant]
     Active Substance: DEXKETOPROFEN\TRAMADOL
     Indication: Product used for unknown indication
     Dosage: UNK
     Route: 065
  16. BISOPROLOL FUMARATE [Concomitant]
     Active Substance: BISOPROLOL FUMARATE
     Indication: Product used for unknown indication
     Dosage: 2.5 MILLIGRAM, QD (1-0-0)
     Route: 048
  17. ZALDIAR [Concomitant]
     Active Substance: ACETAMINOPHEN\TRAMADOL HYDROCHLORIDE
     Indication: Product used for unknown indication
     Dosage: UNK (37.5MG/325MG)
     Route: 065

REACTIONS (6)
  - Immune-mediated lung disease [Fatal]
  - Cardiac failure [Fatal]
  - Polyneuropathy [Not Recovered/Not Resolved]
  - Pain in extremity [Not Recovered/Not Resolved]
  - Acute respiratory failure [Recovered/Resolved]
  - Haemorrhage [Unknown]

NARRATIVE: CASE EVENT DATE: 20250101
